FAERS Safety Report 19030770 (Version 1)
Quarter: 2021Q1

REPORT INFORMATION
  Report Type: Spontaneous
  Country: US (occurrence: US)
  Receive Date: 20210318
  Receipt Date: 20210318
  Transmission Date: 20210420
  Serious: No
  Sender: FDA-Public Use
  Company Number: None

PATIENT
  Age: 68 Year
  Sex: Female

DRUGS (1)
  1. ADEMPAS [Suspect]
     Active Substance: RIOCIGUAT
     Indication: PULMONARY ARTERIAL HYPERTENSION
     Route: 048
     Dates: start: 20210309

REACTIONS (5)
  - Dyspnoea [None]
  - Headache [None]
  - Hypotension [None]
  - Abdominal distension [None]
  - Oedema peripheral [None]

NARRATIVE: CASE EVENT DATE: 20210318
